FAERS Safety Report 21660720 (Version 2)
Quarter: 2023Q2

REPORT INFORMATION
  Report Type: Spontaneous
  Country: BR (occurrence: BR)
  Receive Date: 20221130
  Receipt Date: 20230524
  Transmission Date: 20230721
  Serious: Yes (Other)
  Sender: FDA-Public Use
  Company Number: BR-CELLTRION INC.-2022BR020053

PATIENT

DRUGS (5)
  1. HERZUMA [Suspect]
     Active Substance: TRASTUZUMAB-PKRB
     Indication: Invasive breast carcinoma
     Dosage: 456 MG, CYCLIC
     Route: 042
     Dates: start: 20220624, end: 20220624
  2. PACLITAXEL [Suspect]
     Active Substance: PACLITAXEL
     Indication: Invasive breast carcinoma
     Dosage: UNK
     Dates: start: 20220525
  3. NYSTATIN [Concomitant]
     Active Substance: NYSTATIN
     Dosage: 4 EVERY 6 HOURS [100,000 IU/ML ? 5 ML OF 6/6H ]
     Route: 048
     Dates: start: 20220621, end: 20220625
  4. MINERAL OIL [Concomitant]
     Active Substance: MINERAL OIL
     Indication: Constipation
     Dosage: 2 EVERY 12 HOURS [10 ML ? 12/12H ]
     Route: 048
     Dates: start: 20220621, end: 20220711
  5. LORATADINE [Concomitant]
     Active Substance: LORATADINE
     Indication: Hypersensitivity
     Dosage: 1 PER 24 HOUR [10 MG-1 PILL PER DAY DAY]
     Route: 048
     Dates: start: 20220621, end: 20220628

REACTIONS (5)
  - Flushing [Unknown]
  - Dyspnoea [Unknown]
  - Back pain [Unknown]
  - Chills [Unknown]
  - Tremor [Recovered/Resolved]

NARRATIVE: CASE EVENT DATE: 20220624
